FAERS Safety Report 10742256 (Version 1)
Quarter: 2015Q1

REPORT INFORMATION
  Report Type: Spontaneous
  Country: US (occurrence: None)
  Receive Date: 20150123
  Receipt Date: 20150123
  Transmission Date: 20150721
  Serious: Yes (Other)
  Sender: FDA-Public Use
  Company Number: None

PATIENT
  Age: 28 Year
  Sex: Male
  Weight: 113.4 kg

DRUGS (2)
  1. VYVANSE [Suspect]
     Active Substance: LISDEXAMFETAMINE DIMESYLATE
     Indication: ATTENTION DEFICIT/HYPERACTIVITY DISORDER
     Dosage: 1
     Route: 048
     Dates: start: 20100101, end: 20150122
  2. VYVANSE [Suspect]
     Active Substance: LISDEXAMFETAMINE DIMESYLATE
     Dosage: 1
     Route: 048
     Dates: start: 20100101, end: 20150122

REACTIONS (5)
  - Skin reaction [None]
  - Drug interaction [None]
  - Agitation [None]
  - Constipation [None]
  - Headache [None]

NARRATIVE: CASE EVENT DATE: 20150119
